FAERS Safety Report 6812039-7 (Version None)
Quarter: 2010Q3

REPORT INFORMATION
  Report Type: 
  Country: None (occurrence: None)
  Receive Date: 20100701
  Receipt Date: 20100617
  Transmission Date: 20110219
  Serious: Yes (Disabling, Other)
  Sender: FDA-Public Use
  Company Number: PHHY2010US25812

PATIENT
  Sex: Female

DRUGS (4)
  1. RECLAST [Suspect]
     Indication: OSTEOPOROSIS
     Dosage: UNK
     Route: 042
     Dates: start: 20100218
  2. IBUPROFEN [Concomitant]
  3. TYLENOL [Concomitant]
  4. COUMADIN [Concomitant]

REACTIONS (11)
  - BONE PAIN [None]
  - CHEST PAIN [None]
  - CHILLS [None]
  - DEPRESSED MOOD [None]
  - DYSPNOEA [None]
  - EYE PAIN [None]
  - INFLUENZA LIKE ILLNESS [None]
  - PAIN [None]
  - PYREXIA [None]
  - WEIGHT INCREASED [None]
  - WHEEZING [None]
